FAERS Safety Report 6837171-3 (Version None)
Quarter: 2010Q3

REPORT INFORMATION
  Report Type: 
  Country: None (occurrence: None)
  Receive Date: 20100713
  Receipt Date: 20100629
  Transmission Date: 20110219
  Serious: Yes (Other)
  Sender: FDA-Public Use
  Company Number: BE-GENENTECH-303540

PATIENT
  Age: 36 Year
  Sex: Female

DRUGS (1)
  1. XOLAIR [Suspect]
     Indication: HYPERSENSITIVITY
     Dosage: 375 MG, BID
     Route: 058
     Dates: start: 20090101, end: 20100601

REACTIONS (1)
  - CYTOLYTIC HEPATITIS [None]
